FAERS Safety Report 26198040 (Version 1)
Quarter: 2025Q4

REPORT INFORMATION
  Report Type: Spontaneous
  Country: US (occurrence: US)
  Receive Date: 20251224
  Receipt Date: 20251224
  Transmission Date: 20260117
  Serious: Yes (Other)
  Sender: TAKEDA
  Company Number: US-TAKEDA-2025TUS115933

PATIENT

DRUGS (1)
  1. TAKHZYRO [Suspect]
     Active Substance: LANADELUMAB-FLYO
     Indication: Product used for unknown indication
     Dosage: 300MG/2 ML/ 2 SYRINGES, Q4WEEKS

REACTIONS (3)
  - Nephrolithiasis [Unknown]
  - Illness [Recovering/Resolving]
  - Malaise [Unknown]
